FAERS Safety Report 7113947-2 (Version None)
Quarter: 2010Q4

REPORT INFORMATION
  Report Type: 
  Country: None (occurrence: None)
  Receive Date: 20101119
  Receipt Date: 20101111
  Transmission Date: 20110411
  Serious: Yes (Hospitalization, Congenital Anomaly)
  Sender: FDA-Public Use
  Company Number: A0836305A

PATIENT

DRUGS (2)
  1. PAXIL CR [Suspect]
     Indication: DEPRESSION
     Dosage: 25MG PER DAY
     Dates: start: 19991109, end: 20000509
  2. PRENATAL VITAMINS [Concomitant]

REACTIONS (22)
  - ANAEMIA [None]
  - ASCITES [None]
  - ATELECTASIS [None]
  - ATRIAL SEPTAL DEFECT [None]
  - BREECH PRESENTATION [None]
  - CARDIAC FAILURE CONGESTIVE [None]
  - COARCTATION OF THE AORTA [None]
  - DRUG EXPOSURE DURING PREGNANCY [None]
  - FAILURE TO THRIVE [None]
  - HYPOPHAGIA [None]
  - MATERNAL DRUGS AFFECTING FOETUS [None]
  - MULTIPLE CONGENITAL ABNORMALITIES [None]
  - PNEUMONIA [None]
  - PNEUMOTHORAX [None]
  - POST PROCEDURAL COMPLICATION [None]
  - PULMONARY ARTERY STENOSIS CONGENITAL [None]
  - PULMONARY OEDEMA [None]
  - PYLORIC STENOSIS [None]
  - THERAPEUTIC RESPONSE DECREASED [None]
  - VENTRICULAR SEPTAL DEFECT [None]
  - VOMITING [None]
  - WEIGHT DECREASED [None]
